FAERS Safety Report 8814362 (Version 1)
Quarter: 2012Q4

REPORT INFORMATION
  Report Type: 
  Country: GB (occurrence: GB)
  Receive Date: 20120928
  Receipt Date: 20120928
  Transmission Date: 20130627
  Serious: Yes (Other)
  Sender: FDA-Public Use
  Company Number: PHHY2012GB082602

PATIENT
  Age: 42 Week
  Sex: Female
  Weight: 4.56 kg

DRUGS (3)
  1. OCTREOTIDE [Suspect]
     Indication: HYPERINSULINISM
     Dosage: 5 ug/kg, daily
     Route: 058
  2. OCTREOTIDE [Suspect]
     Dosage: 20 ug/kg, daily
     Route: 058
  3. OCTREOTIDE [Suspect]
     Dosage: 30 ug/kg, UNK
     Route: 058

REACTIONS (5)
  - Candida sepsis [Unknown]
  - Drug-induced liver injury [Unknown]
  - Alanine aminotransferase increased [Recovered/Resolved]
  - Hepatic lesion [Unknown]
  - Device related infection [None]
